FAERS Safety Report 11086401 (Version 12)
Quarter: 2016Q3

REPORT INFORMATION
  Report Type: Report from Study
  Country: IT (occurrence: IT)
  Receive Date: 20150504
  Receipt Date: 20160912
  Transmission Date: 20161109
  Serious: Yes (Other)
  Sender: FDA-Public Use
  Company Number: IT-ROCHE-1571185

PATIENT
  Age: 84 Year
  Sex: Male

DRUGS (4)
  1. ALLOPURINOL. [Concomitant]
     Active Substance: ALLOPURINOL
     Indication: HYPERURICAEMIA
     Route: 048
     Dates: start: 20150331, end: 20150505
  2. DELTACORTENE [Concomitant]
     Active Substance: PREDNISONE
     Dosage: 25 MG TABLETS^ 10 TABLETS
     Route: 048
  3. VEMURAFENIB [Suspect]
     Active Substance: VEMURAFENIB
     Dosage: 4 DF PER DAY, 240MG - BLISTER PACK (AL/AL) 56 TABLETS
     Route: 048
     Dates: start: 20150331, end: 20150505
  4. VEMURAFENIB [Suspect]
     Active Substance: VEMURAFENIB
     Indication: MALIGNANT MELANOMA
     Dosage: 240MG - FILM-COATED TABLET - BLISTER PACK (AL/AL)
     Route: 048
     Dates: start: 20150310, end: 20150330

REACTIONS (8)
  - Hyperuricaemia [Unknown]
  - Blood creatinine increased [Not Recovered/Not Resolved]
  - Bundle branch block right [Not Recovered/Not Resolved]
  - Transaminases increased [Not Recovered/Not Resolved]
  - Spinocerebellar ataxia [Unknown]
  - Hyperkeratosis [Not Recovered/Not Resolved]
  - Ataxia [Unknown]
  - Hyperuricaemia [Not Recovered/Not Resolved]

NARRATIVE: CASE EVENT DATE: 20150329
